FAERS Safety Report 23074173 (Version 1)
Quarter: 2023Q4

REPORT INFORMATION
  Report Type: Report from Study
  Country: AU (occurrence: None)
  Receive Date: 20231017
  Receipt Date: 20231017
  Transmission Date: 20240110
  Serious: Yes (Hospitalization)
  Sender: FDA-Public Use
  Company Number: 2023A231016

PATIENT
  Age: 582 Month
  Sex: Female

DRUGS (1)
  1. FASENRA [Suspect]
     Active Substance: BENRALIZUMAB
     Indication: Asthma
     Route: 058
     Dates: start: 2021

REACTIONS (2)
  - Malaise [Unknown]
  - Psychiatric symptom [Unknown]

NARRATIVE: CASE EVENT DATE: 20220801
